FAERS Safety Report 13090796 (Version 1)
Quarter: 2017Q1

REPORT INFORMATION
  Report Type: Spontaneous
  Country: SE (occurrence: SE)
  Receive Date: 20170106
  Receipt Date: 20170106
  Transmission Date: 20170428
  Serious: Yes (Hospitalization)
  Sender: FDA-Public Use
  Company Number: SE-009507513-1701SWE001964

PATIENT
  Age: 82 Year
  Sex: Male

DRUGS (1)
  1. EZETROL 10 MG TABLETTER [Suspect]
     Active Substance: EZETIMIBE
     Route: 048

REACTIONS (1)
  - Amylase increased [Unknown]
